FAERS Safety Report 7353289-3 (Version None)
Quarter: 2011Q1

REPORT INFORMATION
  Report Type: 
  Country: None (occurrence: None)
  Receive Date: 20110315
  Receipt Date: 20110302
  Transmission Date: 20110831
  Serious: Yes (Hospitalization)
  Sender: FDA-Public Use
  Company Number: US-ACTELION-A-NJ2010-35301

PATIENT

DRUGS (2)
  1. TRACLEER [Suspect]
     Dosage: 62.5 MG, BID
     Route: 048
     Dates: start: 20090331, end: 20090430
  2. TRACLEER [Suspect]
     Indication: PULMONARY ARTERIAL HYPERTENSION
     Dosage: 125 MG, BID
     Route: 048
     Dates: start: 20090501

REACTIONS (6)
  - OEDEMA PERIPHERAL [None]
  - CHEST PAIN [None]
  - PLEURAL EFFUSION [None]
  - DYSPNOEA [None]
  - PERICARDIAL EFFUSION [None]
  - RESPIRATORY FAILURE [None]
